FAERS Safety Report 10582280 (Version 2)
Quarter: 2015Q1

REPORT INFORMATION
  Report Type: Spontaneous
  Country: ES (occurrence: ES)
  Receive Date: 20141113
  Receipt Date: 20150120
  Transmission Date: 20150720
  Serious: Yes (Other)
  Sender: FDA-Public Use
  Company Number: ES-ELI_LILLY_AND_COMPANY-ES201411003936

PATIENT
  Sex: Male

DRUGS (4)
  1. OMEPRAZOL                          /00661201/ [Concomitant]
     Active Substance: OMEPRAZOLE
  2. NOLOTIL                            /06276702/ [Concomitant]
  3. HEPARIN [Concomitant]
     Active Substance: HEPARIN SODIUM
  4. FORSTEO [Suspect]
     Active Substance: TERIPARATIDE
     Indication: FRACTURE MALUNION
     Dosage: UNK, SINGLE
     Route: 065
     Dates: start: 20141105, end: 20141105

REACTIONS (2)
  - Presyncope [Recovered/Resolved]
  - Off label use [Unknown]

NARRATIVE: CASE EVENT DATE: 20141105
